FAERS Safety Report 4487619-7 (Version None)
Quarter: 2004Q4

REPORT INFORMATION
  Report Type: 
  Country: None (occurrence: None)
  Receive Date: 20041025
  Receipt Date: 20041012
  Transmission Date: 20050328
  Serious: Yes (Life-Threatening)
  Sender: FDA-Public Use
  Company Number: 209636

PATIENT
  Age: 17 Year
  Sex: Female
  Weight: 136 kg

DRUGS (19)
  1. RITUXAN [Suspect]
     Indication: SYSTEMIC LUPUS ERYTHEMATOSUS
     Dosage: 575 MG, 1/WEEK, INTRAVENOUS
     Route: 042
     Dates: start: 20040901, end: 20041013
  2. BENADRYL [Concomitant]
  3. TYLENOL [Concomitant]
  4. COZAAR [Concomitant]
  5. CELEBREX [Concomitant]
  6. PLAQUENIL [Concomitant]
  7. K-DUR 10 [Concomitant]
  8. CELLCEPT [Concomitant]
  9. ASPIRIN [Concomitant]
  10. CALCIUM (CALCIUM NOS) [Concomitant]
  11. MULTIVITAMIN (MULTIVITAMINS NOS) [Concomitant]
  12. VITAMIN E [Concomitant]
  13. COD LIVER OIL (COD LIVER OIL) [Concomitant]
  14. VICODIN (HYDROCODONE BITRATRATE, ACETAMINOPHEN) [Concomitant]
  15. MIDRIN (ACETAMINOPHEN, DICHLORALPHENAZONE, ISOMETHEPTENE MUCATE) [Concomitant]
  16. PREDNISONE [Concomitant]
  17. FLEXERIL [Concomitant]
  18. AUGMENTIN XR (CLAVULANATE POTASSIUM, AMOXICILLIN) [Concomitant]
  19. PRILOSEC [Concomitant]

REACTIONS (1)
  - ANAPHYLACTOID REACTION [None]
